FAERS Safety Report 9376976 (Version 1)
Quarter: 2013Q3

REPORT INFORMATION
  Report Type: Spontaneous
  Country: US (occurrence: US)
  Receive Date: 20130701
  Receipt Date: 20130701
  Transmission Date: 20140515
  Serious: Yes (Other)
  Sender: FDA-Public Use
  Company Number: US-AMGEN-USASP2013045081

PATIENT
  Age: 69 Year
  Sex: Female

DRUGS (4)
  1. ENBREL [Suspect]
     Indication: RHEUMATOID ARTHRITIS
     Dosage: 50 MG, QWK
     Route: 065
     Dates: start: 2013
  2. PREDNISONE [Suspect]
     Indication: INFLAMMATION
     Dosage: UNK
  3. PREDNISONE [Suspect]
     Indication: ARTHRITIS
  4. METHOTREXATE [Concomitant]
     Dosage: 6 MG, UNK

REACTIONS (11)
  - Head injury [Not Recovered/Not Resolved]
  - Fall [Not Recovered/Not Resolved]
  - Inflammation [Not Recovered/Not Resolved]
  - Arthritis [Not Recovered/Not Resolved]
  - Impaired driving ability [Not Recovered/Not Resolved]
  - Nausea [Not Recovered/Not Resolved]
  - Aphagia [Not Recovered/Not Resolved]
  - Dizziness [Not Recovered/Not Resolved]
  - Contusion [Not Recovered/Not Resolved]
  - Mental disorder [Not Recovered/Not Resolved]
  - Arthralgia [Not Recovered/Not Resolved]
